FAERS Safety Report 15558268 (Version 2)
Quarter: 2019Q1

REPORT INFORMATION
  Report Type: Report from Study
  Country: DE (occurrence: DE)
  Receive Date: 20181028
  Receipt Date: 20190102
  Transmission Date: 20190417
  Serious: Yes (Other)
  Sender: FDA-Public Use
  Company Number: DE-BIOGEN-2018BI00650341

PATIENT
  Age: 27 Year
  Sex: Male
  Weight: 80 kg

DRUGS (5)
  1. ASPIRIN. [Concomitant]
     Active Substance: ASPIRIN
     Indication: HEADACHE
     Route: 048
     Dates: start: 2011
  2. TYSABRI [Suspect]
     Active Substance: NATALIZUMAB
     Indication: MULTIPLE SCLEROSIS
     Dosage: INFUSED FOR OVER 1 HOUR
     Route: 042
     Dates: start: 20120529
  3. NEUREXAN [Concomitant]
     Active Substance: HOMEOPATHICS
     Indication: SLEEP DISORDER
     Route: 048
     Dates: start: 20161219
  4. DEKRISTOL [Concomitant]
     Active Substance: CHOLECALCIFEROL
     Indication: VITAMIN D DEFICIENCY
     Route: 065
     Dates: start: 20150720
  5. PAROXETINE. [Concomitant]
     Active Substance: PAROXETINE
     Indication: PANIC ATTACK
     Route: 048

REACTIONS (1)
  - Opportunistic infection [Unknown]

NARRATIVE: CASE EVENT DATE: 20180305
